FAERS Safety Report 16481734 (Version 3)
Quarter: 2019Q3

REPORT INFORMATION
  Report Type: Report from Study
  Country: US (occurrence: US)
  Receive Date: 20190627
  Receipt Date: 20190813
  Transmission Date: 20191004
  Serious: Yes (Hospitalization, Other)
  Sender: FDA-Public Use
  Company Number: US-ASPEN-GLO2019US006233

PATIENT
  Age: 2 Year
  Sex: Female
  Weight: 13 kg

DRUGS (7)
  1. CYTARABINE. [Suspect]
     Active Substance: CYTARABINE
     Indication: LEUKAEMIA
     Dosage: 42 MG, QD, DAYS 36-39
     Route: 058
     Dates: start: 20181102
  2. PEGASPARGASE [Suspect]
     Active Substance: PEGASPARGASE
     Indication: LEUKAEMIA
     Dosage: 1400 IU/M2, ONCE. DAY 43
     Route: 042
     Dates: start: 20181114
  3. VINCRISTINE [Suspect]
     Active Substance: VINCRISTINE
     Indication: LEUKAEMIA
     Dosage: 0.84 MG ONCE. DAYS 43 AND 50
     Route: 042
     Dates: start: 20181114
  4. TIOGUANINE [Suspect]
     Active Substance: THIOGUANINE ANHYDROUS
     Indication: LEUKAEMIA
     Dosage: 34 MG, QD. DAYS 29-42
     Route: 048
     Dates: start: 20190424
  5. METHOTREXATE. [Suspect]
     Active Substance: METHOTREXATE
     Indication: LEUKAEMIA
     Dosage: 10 MG, QD DAYS 29 AND 36
     Route: 037
     Dates: start: 20181101
  6. CYCLOPHOSPHAMIDE. [Suspect]
     Active Substance: CYCLOPHOSPHAMIDE
     Indication: LEUKAEMIA
     Dosage: 560 MG, 1 DOSAGE TOTAL
     Route: 042
     Dates: start: 20181102
  7. RUXOLITINIB [Suspect]
     Active Substance: RUXOLITINIB
     Indication: LEUKAEMIA
     Dosage: 30 MG, BID
     Route: 048
     Dates: start: 20181101

REACTIONS (1)
  - Gastroenteritis norovirus [Recovered/Resolved]

NARRATIVE: CASE EVENT DATE: 20190527
